FAERS Safety Report 4279148-0 (Version None)
Quarter: 2004Q1

REPORT INFORMATION
  Report Type: 
  Country: None (occurrence: None)
  Receive Date: 20040126
  Receipt Date: 20040126
  Transmission Date: 20041129
  Serious: Yes (Life-Threatening, Hospitalization)
  Sender: FDA-Public Use
  Company Number: None

PATIENT
  Age: 58 Year
  Sex: Male
  Weight: 106.1417 kg

DRUGS (5)
  1. REMICADE [Suspect]
     Indication: RHEUMATOID ARTHRITIS
     Dosage: 400 MG IV Q 8 WKS
     Dates: start: 20011201
  2. PREDNISONE [Concomitant]
  3. ARAVA [Concomitant]
  4. METHOTREXATE [Concomitant]
  5. REMICADE [Concomitant]

REACTIONS (4)
  - ARTHRITIS BACTERIAL [None]
  - DIZZINESS [None]
  - SEPSIS [None]
  - STAPHYLOCOCCAL INFECTION [None]
